FAERS Safety Report 16826922 (Version 1)
Quarter: 2019Q3

REPORT INFORMATION
  Report Type: Spontaneous
  Country: FR (occurrence: FR)
  Receive Date: 20190919
  Receipt Date: 20190919
  Transmission Date: 20191005
  Serious: Yes (Hospitalization, Other)
  Sender: FDA-Public Use
  Company Number: FR-MYLANLABS-2019M1086408

PATIENT
  Age: 60 Year
  Sex: Male

DRUGS (19)
  1. BACLOFEN. [Suspect]
     Active Substance: BACLOFEN
     Dosage: DOSES TO 80 MG/D
  2. LERCANIDIPINE [Concomitant]
     Active Substance: LERCANIDIPINE
     Dosage: UNK
  3. HYDROXYZINE [Suspect]
     Active Substance: HYDROXYZINE HYDROCHLORIDE
     Indication: PRODUCT USED FOR UNKNOWN INDICATION
     Dosage: 25 MILLIGRAM
  4. FLECAINIDE [Concomitant]
     Active Substance: FLECAINIDE
     Dosage: UNK
  5. BACLOFEN. [Suspect]
     Active Substance: BACLOFEN
     Indication: BINGE EATING
     Dosage: 120 TO 140 MG/D
  6. BACLOFEN. [Suspect]
     Active Substance: BACLOFEN
     Dosage: 60 MILLIGRAM, Q5D (DOSES UP TO 300 MG/D (60MG TAKEN 5 TIMEA A DAY))
     Dates: start: 2016
  7. BACLOFEN. [Suspect]
     Active Substance: BACLOFEN
     Dosage: REGIMEN UP TO 300 MG/D
  8. TELMISARTAN. [Concomitant]
     Active Substance: TELMISARTAN
     Dosage: UNK
  9. RILMENIDINE [Concomitant]
     Active Substance: RILMENIDINE
     Dosage: UNK
  10. SPIRONOLACTONE. [Concomitant]
     Active Substance: SPIRONOLACTONE
     Dosage: UNK
  11. NEVIRAPINE. [Concomitant]
     Active Substance: NEVIRAPINE
     Dosage: UNK
  12. BISOPROLOL [Concomitant]
     Active Substance: BISOPROLOL
     Dosage: UNK
  13. MIANSERIN [Suspect]
     Active Substance: MIANSERIN
     Indication: PRODUCT USED FOR UNKNOWN INDICATION
     Dosage: 10 MILLIGRAM
  14. ABACAVIR + LAMIVUDIN [Concomitant]
     Active Substance: ABACAVIR\LAMIVUDINE
     Dosage: UNK
  15. BACLOFEN. [Suspect]
     Active Substance: BACLOFEN
     Dosage: 70 MILLIGRAM, QD
  16. BACLOFEN. [Suspect]
     Active Substance: BACLOFEN
     Dosage: 150 MILLIGRAM, QD (DOSAGE OF 150 MG/D AFTER MEDICAL EVALUATION)
  17. BACLOFEN. [Suspect]
     Active Substance: BACLOFEN
     Dosage: MIXED 10 AND 25 MG PILLS TO OBTAIN FULL DOSAGE
  18. BACLOFEN. [Suspect]
     Active Substance: BACLOFEN
     Dosage: 180 TO 200 MG/D
  19. ASPIRIN                            /00002701/ [Concomitant]
     Active Substance: ASPIRIN
     Dosage: UNK

REACTIONS (19)
  - Aggression [Recovered/Resolved]
  - Drug withdrawal syndrome [Recovered/Resolved]
  - Drug abuse [Unknown]
  - Intentional product misuse [Unknown]
  - Hallucination, visual [Recovered/Resolved]
  - Irritability [Recovered/Resolved]
  - Medication error [Unknown]
  - Drug level increased [Recovered/Resolved]
  - Amnesia [Recovered/Resolved]
  - Time perception altered [Recovered/Resolved]
  - Confusional state [Recovered/Resolved]
  - Overdose [Unknown]
  - Dizziness [Recovered/Resolved]
  - Somnolence [Recovered/Resolved]
  - Cognitive disorder [Recovered/Resolved]
  - Nausea [Recovered/Resolved]
  - Psychomotor hyperactivity [Recovered/Resolved]
  - Delusional perception [Recovered/Resolved]
  - Tachyphrenia [Recovered/Resolved]
